FAERS Safety Report 7487726-0 (Version None)
Quarter: 2011Q2

REPORT INFORMATION
  Report Type: 
  Country: None (occurrence: None)
  Receive Date: 20110518
  Receipt Date: 20110505
  Transmission Date: 20111010
  Serious: Yes (Other)
  Sender: FDA-Public Use
  Company Number: US-CELGENEUS-163-21880-11050775

PATIENT
  Sex: Female
  Weight: 84.6 kg

DRUGS (9)
  1. LORTAB [Concomitant]
     Dosage: 7.5/500MG
     Route: 065
  2. REVLIMID [Suspect]
     Dosage: 10 MILLIGRAM
     Route: 048
     Dates: start: 20100928
  3. REVLIMID [Suspect]
     Dosage: 15 MILLIGRAM
     Route: 048
  4. VICODIN [Concomitant]
     Dosage: 1-2, 5/500MG
     Route: 065
  5. TRAMADOL HCL [Concomitant]
     Indication: PAIN
     Dosage: 15 MILLIGRAM
     Route: 065
  6. EFFEXOR [Concomitant]
     Indication: STRESS
  7. SYNTHROID [Concomitant]
     Dosage: 100 MICROGRAM
     Route: 065
  8. REVLIMID [Suspect]
     Dosage: 15-20MG
     Route: 048
  9. EFFEXOR [Concomitant]
     Indication: ANXIETY
     Dosage: 150 MILLIGRAM
     Route: 065

REACTIONS (2)
  - CARDIAC FLUTTER [None]
  - SINUS TACHYCARDIA [None]
